FAERS Safety Report 6831401-X (Version None)
Quarter: 2010Q3

REPORT INFORMATION
  Report Type: 
  Country: None (occurrence: None)
  Receive Date: 20100712
  Receipt Date: 20100702
  Transmission Date: 20110219
  Serious: Yes (Other)
  Sender: FDA-Public Use
  Company Number: B0664725A

PATIENT
  Age: 29 Year
  Sex: Female

DRUGS (1)
  1. ALLI [Suspect]
     Route: 065
     Dates: start: 20100630, end: 20100702

REACTIONS (5)
  - BURNING SENSATION [None]
  - FREQUENT BOWEL MOVEMENTS [None]
  - PRURITUS [None]
  - RASH [None]
  - URTICARIA [None]
